FAERS Safety Report 16854816 (Version 3)
Quarter: 2019Q4

REPORT INFORMATION
  Report Type: Report from Study
  Country: DE (occurrence: DE)
  Receive Date: 20190926
  Receipt Date: 20191227
  Transmission Date: 20200122
  Serious: Yes (Hospitalization)
  Sender: FDA-Public Use
  Company Number: DE-GLAXOSMITHKLINE-DE2019GSK125407

PATIENT
  Age: 63 Year
  Sex: Male

DRUGS (1)
  1. UMECLIDINIUM BR+VILANTEROL TRIFENATATE [Suspect]
     Active Substance: UMECLIDINIUM BROMIDE\VILANTEROL TRIFENATATE
     Indication: CHRONIC OBSTRUCTIVE PULMONARY DISEASE
     Dosage: 30 DOSES PER INHALER
     Route: 055
     Dates: start: 20170412

REACTIONS (1)
  - Emphysema [Recovered/Resolved]

NARRATIVE: CASE EVENT DATE: 20180719
